FAERS Safety Report 15866872 (Version 1)
Quarter: 2019Q1

REPORT INFORMATION
  Report Type: Other
  Country: FR (occurrence: FR)
  Receive Date: 20190125
  Receipt Date: 20190125
  Transmission Date: 20190417
  Serious: Yes (Hospitalization)
  Sender: FDA-Public Use
  Company Number: FR-TAIHO ONCOLOGY  INC-IM-2019-00028

PATIENT
  Age: 69 Year
  Sex: Female
  Weight: 63 kg

DRUGS (4)
  1. ORACILLINE [Suspect]
     Active Substance: PENICILLIN V
     Indication: INFECTION
     Dosage: 2 IU BID
     Route: 048
     Dates: start: 20181108, end: 20181114
  2. LOXEN (NICARDIPINE HYDROCHLORIDE) [Concomitant]
     Active Substance: NICARDIPINE HYDROCHLORIDE
     Indication: HYPERTENSION
     Dosage: 20 MG, QD
     Route: 048
     Dates: start: 20180618
  3. LONSURF [Suspect]
     Active Substance: TIPIRACIL HYDROCHLORIDE\TRIFLURIDINE
     Indication: COLORECTAL CANCER METASTATIC
     Dosage: 110 MG DAILY
     Route: 048
     Dates: start: 20180827, end: 20181102
  4. STIVARGA [Suspect]
     Active Substance: REGORAFENIB
     Indication: COLORECTAL CANCER METASTATIC
     Dosage: 120 MG DAILY, 3 WEEKS/4WEEKS
     Route: 048
     Dates: start: 20181119, end: 20181203

REACTIONS (3)
  - Mouth ulceration [Recovered/Resolved]
  - Rash maculo-papular [Recovering/Resolving]
  - Skin fissures [Recovered/Resolved]

NARRATIVE: CASE EVENT DATE: 20181126
